FAERS Safety Report 7434917-0 (Version None)
Quarter: 2011Q2

REPORT INFORMATION
  Report Type: 
  Country: None (occurrence: None)
  Receive Date: 20110425
  Receipt Date: 20110414
  Transmission Date: 20111010
  Serious: Yes (Hospitalization, Other)
  Sender: FDA-Public Use
  Company Number: JP-ROCHE-724633

PATIENT
  Age: 71 Year
  Sex: Female

DRUGS (11)
  1. FLUOROURACIL [Concomitant]
     Dosage: NOTE: DOASGE IS UNCERATAIN
     Route: 040
  2. FLUOROURACIL [Concomitant]
     Route: 041
  3. IRINOTECAN HCL [Concomitant]
     Route: 041
  4. AVASTIN [Suspect]
     Dosage: NOTE: DOSAGE IS UNCERTAIN
     Route: 041
  5. LEVOFOLINATE [Concomitant]
     Route: 041
  6. ELPLAT [Concomitant]
     Route: 041
  7. FLUOROURACIL [Concomitant]
     Route: 040
  8. LEVOFOLINATE [Concomitant]
     Route: 041
  9. FLUOROURACIL [Concomitant]
     Route: 040
  10. FLUOROURACIL [Concomitant]
     Route: 041
  11. LEVOFOLINATE [Concomitant]
     Route: 041

REACTIONS (2)
  - BONE MARROW FAILURE [None]
  - NEUROPATHY PERIPHERAL [None]
